FAERS Safety Report 10934272 (Version 2)
Quarter: 2015Q4

REPORT INFORMATION
  Report Type: Report from Study
  Country: US (occurrence: US)
  Receive Date: 20150320
  Receipt Date: 20151019
  Transmission Date: 20160304
  Serious: Yes (Hospitalization, Other)
  Sender: FDA-Public Use
  Company Number: US-GILEAD-2015-0142748

PATIENT
  Age: 82 Year
  Sex: Female

DRUGS (2)
  1. RANOLAZINE [Suspect]
     Active Substance: RANOLAZINE
     Indication: ANGINA PECTORIS
     Dosage: 500 MG, QD
     Route: 048
     Dates: start: 20150316, end: 20150513
  2. NITROGLYCERIN. [Concomitant]
     Active Substance: NITROGLYCERIN

REACTIONS (3)
  - Underdose [Unknown]
  - Syncope [Unknown]
  - Drug intolerance [Unknown]

NARRATIVE: CASE EVENT DATE: 2015
